FAERS Safety Report 8129331-9 (Version None)
Quarter: 2012Q1

REPORT INFORMATION
  Report Type: 
  Country: None (occurrence: None)
  Receive Date: 20120210
  Receipt Date: 20120203
  Transmission Date: 20120608
  Serious: Yes (Other)
  Sender: FDA-Public Use
  Company Number: PHHY2012GB009295

PATIENT
  Age: 72 Year
  Sex: Male
  Weight: 101.1 kg

DRUGS (10)
  1. RITUXIMAB [Suspect]
     Dosage: 1000 MG, UNK
     Route: 042
     Dates: start: 20110721
  2. FOLIC ACID [Concomitant]
  3. METHOTREXATE [Suspect]
     Dosage: 25 MG, QW
     Route: 048
  4. RAMIPRIL [Concomitant]
  5. SIMVASTATIN [Concomitant]
  6. LANSOPRAZOLE [Concomitant]
  7. HYDROXYCHLOROQUINE SULFATE [Concomitant]
  8. ACETAMINOPHEN [Concomitant]
  9. IBRUPROFEN [Concomitant]
  10. BENDROFLUMETHIAZIDE [Concomitant]

REACTIONS (1)
  - SQUAMOUS CELL CARCINOMA [None]
